FAERS Safety Report 20076490 (Version 1)
Quarter: 2021Q4

REPORT INFORMATION
  Report Type: Spontaneous
  Country: None (occurrence: US)
  Receive Date: 20211116
  Receipt Date: 20211116
  Transmission Date: 20220303
  Serious: No
  Sender: FDA-Public Use
  Company Number: US-Breckenridge Pharmaceutical, Inc.-2121918

PATIENT
  Sex: Female

DRUGS (2)
  1. DULOXETINE [Suspect]
     Active Substance: DULOXETINE
     Route: 048
  2. DULOXETINE [Suspect]
     Active Substance: DULOXETINE

REACTIONS (4)
  - Dry skin [Unknown]
  - Alopecia [Unknown]
  - Erythema [Unknown]
  - Pruritus [Unknown]
